FAERS Safety Report 8834272 (Version 3)
Quarter: 2017Q3

REPORT INFORMATION
  Report Type: Spontaneous
  Country: US (occurrence: US)
  Receive Date: 20121010
  Receipt Date: 20170804
  Transmission Date: 20171128
  Serious: Yes (Hospitalization, Disabling, Other)
  Sender: FDA-Public Use
  Company Number: US-009507513-1210USA003245

PATIENT
  Sex: Female

DRUGS (1)
  1. FOSAMAX [Suspect]
     Active Substance: ALENDRONATE SODIUM
     Indication: OSTEOPOROSIS
     Dosage: UNK
     Route: 048
     Dates: start: 2002

REACTIONS (22)
  - Pain [Unknown]
  - Arthralgia [Unknown]
  - Adverse event [Unknown]
  - Renal disorder [Unknown]
  - Renal transplant [Unknown]
  - Vomiting [Unknown]
  - Femur fracture [Unknown]
  - Back pain [Unknown]
  - Adverse event [Unknown]
  - Diarrhoea [Unknown]
  - Nausea [Unknown]
  - Limb injury [Unknown]
  - Femur fracture [Not Recovered/Not Resolved]
  - Crohn^s disease [Unknown]
  - Fall [Unknown]
  - Pain in extremity [Unknown]
  - Femur fracture [Unknown]
  - Adverse event [Unknown]
  - Medical device removal [Unknown]
  - Arthritis [Unknown]
  - Atrial fibrillation [Unknown]
  - Muscular weakness [Unknown]

NARRATIVE: CASE EVENT DATE: 2002
